FAERS Safety Report 7927092-7 (Version None)
Quarter: 2011Q4

REPORT INFORMATION
  Report Type: 
  Country: None (occurrence: None)
  Receive Date: 20111116
  Receipt Date: 20111104
  Transmission Date: 20120403
  Serious: Yes (Life-Threatening, Hospitalization)
  Sender: FDA-Public Use
  Company Number: 1000025451

PATIENT
  Age: 75 Year
  Sex: Female
  Weight: 58 kg

DRUGS (3)
  1. METHYLTHIONINIUM CHLORIDE (METHYLTHIONINIUM CHLORIDE) [Suspect]
     Indication: PARATHYROIDECTOMY
     Dosage: 5MG/KG (290MG)
     Dates: start: 20110609, end: 20110609
  2. CITALOPRAM HYDROBROMIDE [Suspect]
     Dosage: 20 MG (20 MG, 1 IN 1 D), ORAL
     Route: 048
     Dates: end: 20110610
  3. TRAMADOL HCL [Concomitant]

REACTIONS (2)
  - NEUROTOXICITY [None]
  - SEROTONIN SYNDROME [None]
